FAERS Safety Report 5856742-4 (Version None)
Quarter: 2008Q3

REPORT INFORMATION
  Report Type: 
  Country: None (occurrence: None)
  Receive Date: 20080821
  Receipt Date: 20080812
  Transmission Date: 20090109
  Serious: Yes (Disabling, Other)
  Sender: FDA-Public Use
  Company Number: 2008-02989

PATIENT
  Age: 77 Year
  Sex: Female
  Weight: 51 kg

DRUGS (17)
  1. VELCADE [Suspect]
     Indication: MULTIPLE MYELOMA
     Dosage: 1.3 MG, INTRAVENOUS; 1.7 MG, INTRAVENOUS
     Route: 042
     Dates: start: 20071022, end: 20071119
  2. VELCADE [Suspect]
     Indication: MULTIPLE MYELOMA
     Dosage: 1.3 MG, INTRAVENOUS; 1.7 MG, INTRAVENOUS
     Route: 042
     Dates: start: 20071022
  3. DECADRON SRC [Concomitant]
  4. DEXAMETHASONE SODIUM PHOSPHATE [Concomitant]
  5. DEXAMETHASONE TAB [Concomitant]
  6. AMLODIPINE BESYLATE [Concomitant]
  7. LISINOPRIL [Concomitant]
  8. MARZULENE S (LEVOGLUTAMIDE, SODIUM GUALENATE) [Concomitant]
  9. ALTAT (ROXATIDINE ACETATE HYDROCHLORIDE) [Concomitant]
  10. METHYCOBAL (MECOBALAMIN) [Concomitant]
  11. ALENDRONATE SODIUM HYDRATE (ALENDRONATE SODIUM) [Concomitant]
  12. PURSENNID (SENNA LEAF) [Concomitant]
  13. CEFDINIR [Concomitant]
  14. SULFAMETHOXAZOLE AND TRIMETHOPRIM [Concomitant]
  15. MAGNESIUM OXIDE (MAGNESIUM OXIDE) [Concomitant]
  16. LECICARBON (SODIUM BICARBONATE, LECITHIN, SODIUM PHOSPHATE MONOBASIC ( [Concomitant]
  17. LAXOBERON (SODIUM PICOSULFATE) [Concomitant]

REACTIONS (6)
  - ABDOMINAL DISTENSION [None]
  - CONSTIPATION [None]
  - DIARRHOEA [None]
  - HERPES ZOSTER [None]
  - HYPOAESTHESIA [None]
  - HYPONATRAEMIA [None]
